FAERS Safety Report 11155728 (Version 1)
Quarter: 2015Q2

REPORT INFORMATION
  Report Type: Other
  Country: GB (occurrence: GB)
  Receive Date: 20150602
  Receipt Date: 20150602
  Transmission Date: 20150821
  Serious: Yes (Hospitalization)
  Sender: FDA-Public Use
  Company Number: GB-MYLANLABS-2014SP001236

PATIENT

DRUGS (4)
  1. CISPLATIN. [Suspect]
     Active Substance: CISPLATIN
     Indication: GASTROOESOPHAGEAL CANCER
     Dosage: 125 MG, (DATE OF MOST RECENT ADMINISTRATION 07/JUL/2013)
     Route: 042
     Dates: start: 20130522
  2. EPIRUBICIN [Suspect]
     Active Substance: EPIRUBICIN
     Indication: GASTROOESOPHAGEAL CANCER
     Dosage: 104 MG, (DATE OF MOST RECENT ADMINISTRATION 03/JUL/2013
     Route: 042
     Dates: start: 20130522
  3. CAPECITABINE. [Suspect]
     Active Substance: CAPECITABINE
     Indication: GASTROOESOPHAGEAL CANCER
     Dosage: 2500 MG, QD (2500 MG, QD (DATE OF MOST RECENT ADMINISTRATION 23/JUL/2013))
     Route: 048
     Dates: start: 20130522
  4. AVASTIN [Suspect]
     Active Substance: BEVACIZUMAB
     Indication: GASTROOESOPHAGEAL CANCER
     Dosage: 700 MG, (DATE OF MOST RECENT ADMINISTRATION 07/JUL/2013)
     Route: 042
     Dates: start: 20130522

REACTIONS (1)
  - Lower respiratory tract infection [Recovered/Resolved]

NARRATIVE: CASE EVENT DATE: 20130917
